FAERS Safety Report 6294174-8 (Version None)
Quarter: 2009Q3

REPORT INFORMATION
  Report Type: 
  Country: None (occurrence: None)
  Receive Date: 20090803
  Receipt Date: 20090219
  Transmission Date: 20100115
  Serious: No
  Sender: FDA-Public Use
  Company Number: A0765659A

PATIENT
  Sex: Female

DRUGS (1)
  1. NICORETTE [Suspect]

REACTIONS (2)
  - MALAISE [None]
  - PRODUCT QUALITY ISSUE [None]
